FAERS Safety Report 12998065 (Version 12)
Quarter: 2018Q2

REPORT INFORMATION
  Report Type: Report from Study
  Country: US (occurrence: US)
  Receive Date: 20161205
  Receipt Date: 20180508
  Transmission Date: 20180711
  Serious: Yes (Life-Threatening, Hospitalization)
  Sender: FDA-Public Use
  Company Number: US-ROCHE-1861980

PATIENT
  Age: 50 Year
  Sex: Female
  Weight: 59.9 kg

DRUGS (27)
  1. MYCOPHENOLIC ACID. [Suspect]
     Active Substance: MYCOPHENOLIC ACID
     Indication: LUPUS NEPHRITIS
     Dosage: LAST REDUCED DOSE PRIOR TO THE SAE RECEIVED ON 21/NOV/2016 360 MG TWICE A DAY
     Route: 048
     Dates: start: 20161118, end: 20161124
  2. BLINDED METHYLPREDNISOLONE [Suspect]
     Active Substance: METHYLPREDNISOLONE
     Indication: LUPUS NEPHRITIS
     Dosage: DATE OF MOST RECENT DOSE OF BLINDED METHYLPREDNISOLONE PRIOR TO SAES ONSET 15/NOV/2016; 10:53
     Route: 042
     Dates: start: 20161115
  3. VITAMIN D3 [Concomitant]
     Active Substance: CHOLECALCIFEROL
     Route: 048
     Dates: start: 20161018
  4. PREDNISONE. [Concomitant]
     Active Substance: PREDNISONE
     Route: 065
  5. ATOVAQUONE. [Concomitant]
     Active Substance: ATOVAQUONE
     Route: 048
     Dates: start: 20161128
  6. SENNOSIDES. [Concomitant]
     Active Substance: SENNOSIDES
     Route: 048
     Dates: start: 20161030
  7. DAPSONE. [Concomitant]
     Active Substance: DAPSONE
     Indication: LUPUS NEPHRITIS
     Dosage: EVERY MONDAY, WEDNESDAY AND FRIDAY
     Route: 048
     Dates: start: 20161030
  8. LASIX [Concomitant]
     Active Substance: FUROSEMIDE
     Route: 048
     Dates: start: 20161115, end: 20161116
  9. PRILOSEC [Concomitant]
     Active Substance: OMEPRAZOLE MAGNESIUM
  10. LEVONORGESTREL. [Concomitant]
     Active Substance: LEVONORGESTREL
     Dosage: 20 OTHER
     Route: 065
     Dates: start: 2008
  11. MYCOPHENOLATE MOFETIL. [Suspect]
     Active Substance: MYCOPHENOLATE MOFETIL
     Indication: LUPUS NEPHRITIS
     Dosage: DOSE OF LAST MYCOPHENOLATE MOFETIL ADMINISTERED PRIOR TO SAE ONSET: 2250 MG ON 17/NOV/2016,? RECEIVE
     Route: 065
     Dates: start: 20161012
  12. OSCAL [Concomitant]
     Active Substance: CALCIUM CARBONATE
     Route: 048
     Dates: start: 20161027
  13. PREDNISONE. [Concomitant]
     Active Substance: PREDNISONE
     Indication: LUPUS NEPHRITIS
     Route: 048
     Dates: start: 20161012
  14. LOSARTAN. [Concomitant]
     Active Substance: LOSARTAN
     Route: 048
     Dates: start: 20161115
  15. ACETAMINOPHEN. [Concomitant]
     Active Substance: ACETAMINOPHEN
     Route: 048
     Dates: start: 20161115, end: 20161115
  16. DIPHENHYDRAMINE HCL [Concomitant]
     Active Substance: DIPHENHYDRAMINE HYDROCHLORIDE
     Route: 048
     Dates: start: 20161115, end: 20161115
  17. K-TAB [Concomitant]
     Active Substance: POTASSIUM CHLORIDE
     Dosage: 10 UNIT REPORTED AS OTHER
     Route: 048
     Dates: start: 20161025, end: 20161027
  18. BLINDED OBINUTUZUMAB [Suspect]
     Active Substance: OBINUTUZUMAB
     Indication: LUPUS NEPHRITIS
     Dosage: DATE OF MOST RECENT DOSE OF BLINDED OBINUTUZUMAB PRIOR TO SAES ONSET 15/NOV/2016, AT 11:35 HOURS?ON
     Route: 042
     Dates: start: 20161115
  19. DOCUSATE SODIUM. [Concomitant]
     Active Substance: DOCUSATE SODIUM
     Route: 048
     Dates: start: 20161030
  20. LOSARTAN. [Concomitant]
     Active Substance: LOSARTAN
     Route: 048
     Dates: start: 20161027, end: 20161115
  21. LASIX [Concomitant]
     Active Substance: FUROSEMIDE
     Route: 048
     Dates: start: 20161104, end: 20161115
  22. BUMEX [Concomitant]
     Active Substance: BUMETANIDE
     Route: 042
  23. RENVELA [Concomitant]
     Active Substance: SEVELAMER CARBONATE
     Route: 048
     Dates: start: 20161013, end: 20161031
  24. METOPROLOL. [Concomitant]
     Active Substance: METOPROLOL
  25. LACTULOSE. [Concomitant]
     Active Substance: LACTULOSE
     Route: 048
     Dates: start: 20161030
  26. LASIX [Concomitant]
     Active Substance: FUROSEMIDE
     Route: 048
     Dates: start: 20161029, end: 20161104
  27. DELTASONE (PREDNISONE) [Concomitant]
     Route: 048

REACTIONS (5)
  - Intestinal perforation [Recovered/Resolved]
  - Disseminated cytomegaloviral infection [Recovered/Resolved]
  - Klebsiella bacteraemia [Recovered/Resolved]
  - Cytomegalovirus myocarditis [Recovered/Resolved]
  - Cytomegalovirus chorioretinitis [Recovered/Resolved]

NARRATIVE: CASE EVENT DATE: 20161121
